FAERS Safety Report 13232443 (Version 1)
Quarter: 2017Q1

REPORT INFORMATION
  Report Type: Report from Study
  Country: None (occurrence: US)
  Receive Date: 20170214
  Receipt Date: 20170214
  Transmission Date: 20170428
  Serious: No
  Sender: FDA-Public Use
  Company Number: US-AMAG PHARMACEUTICALS, INC.-AMAG201600626

PATIENT

DRUGS (3)
  1. MAKENA [Suspect]
     Active Substance: HYDROXYPROGESTERONE CAPROATE
     Indication: PRODUCT USED FOR UNKNOWN INDICATION
     Dosage: 250 MG, UNK
     Route: 065
     Dates: start: 20160408, end: 20160811
  2. URSODIOL. [Concomitant]
     Active Substance: URSODIOL
     Indication: CHOLESTASIS
     Dosage: 300 MG, UNK
  3. NPH ILETIN I [Concomitant]
     Indication: GESTATIONAL DIABETES
     Dosage: 14 UNITS, UNK

REACTIONS (7)
  - Ear pain [Not Recovered/Not Resolved]
  - Contusion [Unknown]
  - Hyperaesthesia [Unknown]
  - Erythema [Not Recovered/Not Resolved]
  - Pruritus [Unknown]
  - Abdominal discomfort [Unknown]
  - Injection site pain [Unknown]

NARRATIVE: CASE EVENT DATE: 2016
